FAERS Safety Report 8027732-0 (Version None)
Quarter: 2012Q1

REPORT INFORMATION
  Report Type: 
  Country: None (occurrence: None)
  Receive Date: 20120106
  Receipt Date: 20111229
  Transmission Date: 20120608
  Serious: Yes (Other)
  Sender: FDA-Public Use
  Company Number: US-BAYER-2011-124560

PATIENT
  Age: 18 Year
  Sex: Female

DRUGS (2)
  1. YAZ [Suspect]
     Dosage: UNK
     Dates: start: 20080101, end: 20090601
  2. YASMIN [Suspect]
     Dosage: UNK
     Dates: start: 20080101, end: 20090601

REACTIONS (4)
  - INJURY [None]
  - PAIN [None]
  - EMOTIONAL DISTRESS [None]
  - GALLBLADDER DISORDER [None]
